FAERS Safety Report 5367093-9 (Version None)
Quarter: 2007Q2

REPORT INFORMATION
  Report Type: 
  Country: None (occurrence: None)
  Receive Date: 20070620
  Receipt Date: 20070620
  Transmission Date: 20071010
  Serious: Yes (Hospitalization)
  Sender: FDA-Public Use
  Company Number: None

PATIENT
  Age: 79 Year
  Sex: Male

DRUGS (1)
  1. DAPTOMYCIN [Suspect]
     Indication: INFECTION
     Dosage: 450 MG EVERY DAY IV
     Route: 042
     Dates: start: 20070504, end: 20070511

REACTIONS (1)
  - THROMBOCYTOPENIA [None]
